FAERS Safety Report 6244501-2 (Version None)
Quarter: 2009Q2

REPORT INFORMATION
  Report Type: 
  Country: None (occurrence: None)
  Receive Date: 20090625
  Receipt Date: 20090616
  Transmission Date: 20091009
  Serious: Yes (Other)
  Sender: FDA-Public Use
  Company Number: JP-JNJFOC-20090607443

PATIENT
  Age: 81 Year
  Sex: Male

DRUGS (1)
  1. RISPERDAL [Suspect]
     Indication: DELIRIUM
     Route: 048

REACTIONS (2)
  - BLOOD BILIRUBIN INCREASED [None]
  - OFF LABEL USE [None]
